FAERS Safety Report 24410100 (Version 2)
Quarter: 2025Q3

REPORT INFORMATION
  Report Type: Spontaneous
  Country: EU (occurrence: EU)
  Receive Date: 20241008
  Receipt Date: 20250818
  Transmission Date: 20251020
  Serious: Yes (Hospitalization, Other)
  Sender: SANDOZ
  Company Number: EU-SZ09-PHHY2016FR006241

PATIENT
  Age: 70 Year
  Sex: Female

DRUGS (3)
  1. CYCLOPHOSPHAMIDE [Suspect]
     Active Substance: CYCLOPHOSPHAMIDE
     Indication: Product used for unknown indication
     Route: 065
  2. DOCETAXEL [Suspect]
     Active Substance: DOCETAXEL
     Indication: Product used for unknown indication
     Route: 065
  3. TRASTUZUMAB [Suspect]
     Active Substance: TRASTUZUMAB
     Indication: Product used for unknown indication
     Route: 065

REACTIONS (11)
  - Blister [Unknown]
  - Hypotonia [Unknown]
  - Skin atrophy [Unknown]
  - Toxic epidermal necrolysis [Unknown]
  - Cutaneous lupus erythematosus [Unknown]
  - Antinuclear antibody [Unknown]
  - Photosensitivity reaction [Unknown]
  - Butterfly rash [Unknown]
  - Skin disorder [Unknown]
  - Lymphocytic infiltration [Unknown]
  - Epidermal necrosis [Unknown]
